FAERS Safety Report 7889369-3 (Version None)
Quarter: 2011Q4

REPORT INFORMATION
  Report Type: 
  Country: None (occurrence: None)
  Receive Date: 20111103
  Receipt Date: 20111101
  Transmission Date: 20120403
  Serious: Yes (Hospitalization)
  Sender: FDA-Public Use
  Company Number: GB-EISAI INC-E2090-01824-SPO-GB

PATIENT
  Age: 17 Year
  Sex: Male

DRUGS (2)
  1. ZONEGRAN [Suspect]
     Dosage: UNKNOWN
     Route: 048
  2. ANTIEPILEPTIC DRUGS [Concomitant]

REACTIONS (1)
  - STEVENS-JOHNSON SYNDROME [None]
